FAERS Safety Report 8301395 (Version 2)
Quarter: 2012Q4

REPORT INFORMATION
  Report Type: 
  Country: US (occurrence: US)
  Receive Date: 20111219
  Receipt Date: 20121026
  Transmission Date: 20130627
  Serious: No
  Sender: FDA-Public Use
  Company Number: US-ASTRAZENECA-2011SE57580

PATIENT
  Age: 74 Year
  Sex: Male
  Weight: 85.3 kg

DRUGS (5)
  1. CRESTOR [Suspect]
     Route: 048
     Dates: start: 201104
  2. CRESTOR [Suspect]
     Route: 048
     Dates: start: 201104, end: 20110920
  3. ASPIRIN [Concomitant]
  4. METOPROLOL [Concomitant]
     Indication: HEART RATE IRREGULAR
  5. FLAVIX [Concomitant]
     Indication: STENT PLACEMENT

REACTIONS (2)
  - Weight decreased [Unknown]
  - Myalgia [Recovered/Resolved]
